FAERS Safety Report 21740627 (Version 1)
Quarter: 2022Q4

REPORT INFORMATION
  Report Type: Spontaneous
  Country: US (occurrence: US)
  Receive Date: 20221216
  Receipt Date: 20221216
  Transmission Date: 20230113
  Serious: Yes (Other)
  Sender: FDA-Public Use
  Company Number: US-SA-SAC20221215001237

PATIENT
  Age: 79 Year
  Sex: Female

DRUGS (4)
  1. DUPIXENT [Suspect]
     Active Substance: DUPILUMAB
     Indication: Dermatitis atopic
     Dosage: 1 DF; QOW
     Route: 058
     Dates: start: 20220810
  2. ASPIRIN [Concomitant]
     Active Substance: ASPIRIN
  3. TRIAMTERENE [Concomitant]
     Active Substance: TRIAMTERENE
  4. BENZONATATE [Concomitant]
     Active Substance: BENZONATATE

REACTIONS (2)
  - Hip fracture [Unknown]
  - Fall [Unknown]
